FAERS Safety Report 6253750-9 (Version None)
Quarter: 2009Q2

REPORT INFORMATION
  Report Type: 
  Country: None (occurrence: None)
  Receive Date: 20090630
  Receipt Date: 20090615
  Transmission Date: 20091009
  Serious: Yes (Disabling, Other)
  Sender: FDA-Public Use
  Company Number: DEP_00249_2009

PATIENT
  Sex: Male
  Weight: 72.5755 kg

DRUGS (4)
  1. GLUMETZA [Suspect]
     Indication: DIABETES MELLITUS
     Dosage: 500 MG BID, ORAL
     Route: 048
     Dates: start: 20080301, end: 20080101
  2. GLUMETZA [Suspect]
     Indication: DIABETES MELLITUS
     Dosage: 500 MG BID, ORAL
     Route: 048
  3. LIPITOR [Concomitant]
  4. NEXIUM [Concomitant]

REACTIONS (4)
  - HYPERSENSITIVITY [None]
  - RASH GENERALISED [None]
  - RASH PRURITIC [None]
  - REACTION TO DRUG EXCIPIENTS [None]
